FAERS Safety Report 6687233-9 (Version None)
Quarter: 2010Q2

REPORT INFORMATION
  Report Type: 
  Country: None (occurrence: None)
  Receive Date: 20100419
  Receipt Date: 20090914
  Transmission Date: 20101027
  Serious: No
  Sender: FDA-Public Use
  Company Number: US-ABBOTT-09P-163-0597752-00

PATIENT
  Sex: Male
  Weight: 118.95 kg

DRUGS (11)
  1. ZEMPLAR [Suspect]
     Indication: RENAL FAILURE
     Dates: start: 20081201, end: 20081201
  2. ZEMPLAR [Suspect]
     Dates: start: 20090101
  3. COLCHICINE [Concomitant]
     Indication: GOUT
  4. ALLOPURINOL [Concomitant]
     Indication: GOUT
  5. LABETALOL HCL [Concomitant]
     Indication: HYPERTENSION
  6. CLONIDINE [Concomitant]
     Indication: HYPERTENSION
  7. TORSEMIDE [Concomitant]
     Indication: FLUID RETENTION
  8. AVAPRO [Concomitant]
     Indication: HYPERTENSION
  9. DOXAZIN [Concomitant]
     Indication: HYPERTENSION
  10. ACTOS [Concomitant]
     Indication: RENAL DISORDER
  11. TRICOR [Concomitant]
     Indication: BLOOD CHOLESTEROL INCREASED

REACTIONS (2)
  - BLOOD PHOSPHORUS INCREASED [None]
  - INCORRECT DRUG ADMINISTRATION DURATION [None]
